FAERS Safety Report 9783515 (Version 1)
Quarter: 2013Q4

REPORT INFORMATION
  Report Type: Spontaneous
  Country: US (occurrence: None)
  Receive Date: 20131223
  Receipt Date: 20131223
  Transmission Date: 20140711
  Serious: Yes (Other)
  Sender: FDA-Public Use
  Company Number: UCM201312-000093

PATIENT
  Age: 18 Year
  Sex: Female

DRUGS (10)
  1. TIZANIDINE [Suspect]
  2. FLUVOXAMINE [Suspect]
  3. FLUDROCORTISONE (FLUDROCORTISONE) (FLUDROCORTISONE) [Concomitant]
  4. DESVENLAFAXINE (DESVENAFAXINE) (DESVENLAFAXINE) [Concomitant]
  5. CLONAZEPAM (CLONAZEPAM) (CLONAZEPAM) [Concomitant]
  6. ZOLPIDEM (ZOLPIDEM) (ZOLPIDEM) [Concomitant]
  7. OXYCODONE (OXYCODONE) (OXYCODONE) [Concomitant]
  8. TOPIRAMATE (TOPIRAMATE) (TOPIRAMATE) [Concomitant]
  9. MIDODRINE (MIDODRINE) (MIDODRINE) [Concomitant]
  10. FLUDROCORTISONE (FLUDROCORTISONE) [Concomitant]

REACTIONS (3)
  - Orthostatic hypotension [None]
  - Syncope [None]
  - Dizziness [None]
